FAERS Safety Report 10101654 (Version 1)
Quarter: 2014Q2

REPORT INFORMATION
  Report Type: Spontaneous
  Country: US (occurrence: None)
  Receive Date: 20140422
  Receipt Date: 20140422
  Transmission Date: 20141212
  Serious: Yes (Other)
  Sender: FDA-Public Use
  Company Number: 2010S1004587

PATIENT
  Age: 42 Year
  Sex: Male
  Weight: 81.65 kg

DRUGS (5)
  1. FLEET PHOSPHO-SODA ORAL SALINE LAXATIVE, GINGER-LEMON FLAVOR (ORAL SOLUTION) [Suspect]
     Indication: OESOPHAGOGASTRIC FUNDOPLASTY
     Dates: start: 20060212, end: 20060212
  2. CRESTOR [Concomitant]
  3. MEDIPLAST [Concomitant]
  4. PRILOSEC [Concomitant]
  5. CELEXA [Concomitant]

REACTIONS (18)
  - Injury [None]
  - Abdominal pain upper [None]
  - Renal failure acute [None]
  - Hypertension [None]
  - Cardiac failure [None]
  - Post procedural complication [None]
  - Hypoxia [None]
  - Pulmonary oedema [None]
  - Thirst [None]
  - Nocturia [None]
  - Pain [None]
  - Urinary hesitation [None]
  - Micturition disorder [None]
  - Nephrolithiasis [None]
  - Hyperlipidaemia [None]
  - Vomiting [None]
  - Bronchospasm [None]
  - Renal failure chronic [None]
